FAERS Safety Report 6712804-0 (Version None)
Quarter: 2010Q2

REPORT INFORMATION
  Report Type: 
  Country: None (occurrence: None)
  Receive Date: 20100506
  Receipt Date: 20090717
  Transmission Date: 20101027
  Serious: No
  Sender: FDA-Public Use
  Company Number: A0797543A

PATIENT
  Age: 89 Year
  Sex: Female

DRUGS (10)
  1. AUGMENTIN '125' [Suspect]
     Dosage: 875MG TWICE PER DAY
     Route: 048
     Dates: start: 20090706
  2. VALTREX [Suspect]
     Dosage: 1CAPL THREE TIMES PER DAY
     Route: 048
     Dates: start: 20090713
  3. AUGMENTIN '125' [Concomitant]
  4. CIPRO [Concomitant]
  5. CARDIZEM CD [Concomitant]
  6. THEO-24 [Concomitant]
  7. SINGULAIR [Concomitant]
  8. LASIX [Concomitant]
  9. POTASSIUM [Concomitant]
  10. NEBULIZER [Concomitant]

REACTIONS (11)
  - BLISTER [None]
  - CHILLS [None]
  - DECREASED APPETITE [None]
  - DRUG INEFFECTIVE [None]
  - EAR PAIN [None]
  - HEADACHE [None]
  - HERPES ZOSTER [None]
  - NAUSEA [None]
  - OTITIS EXTERNA [None]
  - SLEEP DISORDER [None]
  - VOMITING [None]
